FAERS Safety Report 12390840 (Version 2)
Quarter: 2016Q2

REPORT INFORMATION
  Report Type: Spontaneous
  Country: PH (occurrence: PH)
  Receive Date: 20160520
  Receipt Date: 20160601
  Transmission Date: 20160815
  Serious: Yes (Other)
  Sender: FDA-Public Use
  Company Number: PH-GLAXOSMITHKLINE-PH2016GSK071039

PATIENT
  Age: 44 Year
  Sex: Female

DRUGS (1)
  1. RELVARE [Suspect]
     Active Substance: FLUTICASONE FUROATE\VILANTEROL TRIFENATATE
     Indication: PRODUCT USED FOR UNKNOWN INDICATION
     Dosage: 100 UNK, 1D

REACTIONS (3)
  - Oral fungal infection [Recovering/Resolving]
  - Dry mouth [Unknown]
  - Dry throat [Unknown]

NARRATIVE: CASE EVENT DATE: 20160510
